FAERS Safety Report 21142103 (Version 1)
Quarter: 2022Q3

REPORT INFORMATION
  Report Type: Other
  Country: US (occurrence: None)
  Receive Date: 20220728
  Receipt Date: 20220728
  Transmission Date: 20221026
  Serious: No
  Sender: FDA-Public Use
  Company Number: US-ROCHE-3149566

PATIENT
  Age: 64 Year
  Sex: Male
  Weight: 88.530 kg

DRUGS (3)
  1. OCREVUS [Suspect]
     Active Substance: OCRELIZUMAB
     Indication: Primary progressive multiple sclerosis
     Dosage: YES
     Route: 042
  2. AVONEX [Concomitant]
     Active Substance: INTERFERON BETA-1A
  3. BETAFERON [Concomitant]
     Active Substance: INTERFERON BETA-1B

REACTIONS (1)
  - COVID-19 [Recovered/Resolved]

NARRATIVE: CASE EVENT DATE: 20220501
